FAERS Safety Report 19453574 (Version 1)
Quarter: 2021Q2

REPORT INFORMATION
  Report Type: Spontaneous
  Country: US (occurrence: US)
  Receive Date: 20210623
  Receipt Date: 20210623
  Transmission Date: 20210717
  Serious: Yes (Other)
  Sender: FDA-Public Use
  Company Number: US-SCIEGENPHARMA-2021SCISPO00509

PATIENT
  Sex: Female

DRUGS (1)
  1. PREGABALIN CAPSULES [Suspect]
     Active Substance: PREGABALIN
     Indication: PRODUCT USED FOR UNKNOWN INDICATION
     Route: 065

REACTIONS (3)
  - Burns second degree [Unknown]
  - Blister [Unknown]
  - Oedema peripheral [Unknown]
